FAERS Safety Report 5050448-X (Version None)
Quarter: 2006Q3

REPORT INFORMATION
  Report Type: 
  Country: None (occurrence: None)
  Receive Date: 20060707
  Receipt Date: 20060623
  Transmission Date: 20061208
  Serious: Yes (Death, Hospitalization)
  Sender: FDA-Public Use
  Company Number: 8017579

PATIENT
  Age: 82 Year
  Sex: Male

DRUGS (3)
  1. KEPPRA [Suspect]
     Indication: STATUS EPILEPTICUS
     Dosage: 2 G ONCE IV
     Route: 042
  2. OTHER ANTICONVULSANT DRUGS [Concomitant]
  3. SEDATIVES [Concomitant]

REACTIONS (2)
  - STATUS EPILEPTICUS [None]
  - THERAPY NON-RESPONDER [None]
